FAERS Safety Report 5093178-0 (Version None)
Quarter: 2006Q3

REPORT INFORMATION
  Report Type: 
  Country: None (occurrence: None)
  Receive Date: 20060728
  Receipt Date: 20060630
  Transmission Date: 20061208
  Serious: No
  Sender: FDA-Public Use
  Company Number: 254575

PATIENT
  Age: 72 Year
  Sex: Male
  Weight: 135.1 kg

DRUGS (1)
  1. LEVEMIR FLEXPEN(INSULIN DETEMIR) SOLUTION FOR INJECTION, .0024MOL/L [Suspect]
     Indication: DIABETES MELLITUS
     Dosage: 60 LU, QD, SUBCUTANEOUS
     Route: 058
     Dates: start: 20060503

REACTIONS (1)
  - BLOOD GLUCOSE INCREASED [None]
